FAERS Safety Report 21615123 (Version 2)
Quarter: 2022Q4

REPORT INFORMATION
  Report Type: Spontaneous
  Country: IN (occurrence: IN)
  Receive Date: 20221118
  Receipt Date: 20221205
  Transmission Date: 20230112
  Serious: Yes (Other)
  Sender: FDA-Public Use
  Company Number: IN-PFIZER INC-2019299103

PATIENT
  Age: 64 Year
  Sex: Female

DRUGS (5)
  1. PALBOCICLIB [Suspect]
     Active Substance: PALBOCICLIB
     Indication: Breast cancer metastatic
     Dosage: 125 MG, 1X/DAY
     Route: 048
     Dates: start: 20180406
  2. LETROZOLE [Concomitant]
     Active Substance: LETROZOLE
     Dosage: UNK
  3. XGEVA [Concomitant]
     Active Substance: DENOSUMAB
     Dosage: UNK
  4. FULVESTRANT [Concomitant]
     Active Substance: FULVESTRANT
     Dosage: 500 MG, ONCE IN 4 WEEKS
     Dates: start: 202012
  5. ZOLEDRONIC ACID [Concomitant]
     Active Substance: ZOLEDRONIC ACID
     Dosage: 4 MG, IN 250 ML NS FOR 94 WEEKS

REACTIONS (7)
  - Acute kidney injury [Unknown]
  - Pain [Unknown]
  - Back pain [Unknown]
  - White blood cell count decreased [Unknown]
  - Neoplasm progression [Recovering/Resolving]
  - Blister [Unknown]
  - Abscess limb [Unknown]

NARRATIVE: CASE EVENT DATE: 20201128
